FAERS Safety Report 6308340-6 (Version None)
Quarter: 2009Q3

REPORT INFORMATION
  Report Type: 
  Country: None (occurrence: None)
  Receive Date: 20090813
  Receipt Date: 20090810
  Transmission Date: 20100115
  Serious: Yes (Hospitalization)
  Sender: FDA-Public Use
  Company Number: FR-BRISTOL-MYERS SQUIBB COMPANY-14735047

PATIENT
  Age: 21 Year
  Sex: Male

DRUGS (19)
  1. BLEOMYCIN SULFATE [Suspect]
     Indication: HODGKIN'S DISEASE STAGE IV
     Route: 042
     Dates: start: 20080701, end: 20081201
  2. HOLOXAN [Suspect]
     Indication: HODGKIN'S DISEASE STAGE IV
     Route: 042
     Dates: start: 20090106, end: 20090109
  3. UROMITEXAN [Suspect]
     Indication: HODGKIN'S DISEASE STAGE IV
     Route: 042
     Dates: start: 20090105, end: 20090109
  4. CISPLATIN [Suspect]
  5. ETOPOSIDE [Suspect]
     Indication: HODGKIN'S DISEASE STAGE IV
     Route: 042
     Dates: start: 20090105, end: 20090101
  6. DOXORUBICIN HCL [Suspect]
     Indication: HODGKIN'S DISEASE STAGE IV
     Route: 042
     Dates: start: 20080701, end: 20081201
  7. VINBLASTINE [Suspect]
     Indication: HODGKIN'S DISEASE STAGE IV
     Route: 042
     Dates: start: 20080701, end: 20081201
  8. NAVELBINE [Suspect]
     Indication: HODGKIN'S DISEASE STAGE IV
     Route: 042
     Dates: start: 20090105, end: 20090109
  9. DACARBAZINE [Suspect]
     Indication: HODGKIN'S DISEASE STAGE IV
     Route: 042
     Dates: start: 20080701, end: 20081201
  10. METHYL-GAG [Suspect]
     Indication: HODGKIN'S DISEASE STAGE IV
     Route: 042
     Dates: start: 20090105, end: 20090109
  11. ZOPHREN [Concomitant]
     Indication: PREMEDICATION
     Dates: start: 20090105, end: 20090109
  12. SOLU-MEDROL [Concomitant]
     Indication: PREMEDICATION
     Dates: start: 20090105, end: 20090109
  13. LASIX [Concomitant]
     Indication: PREMEDICATION
     Dates: start: 20090105, end: 20090109
  14. ZELITREX [Concomitant]
  15. INIPOMP [Concomitant]
  16. PRIMPERAN [Concomitant]
  17. FORLAX [Concomitant]
     Dosage: 1 DF= 400(UNIT NOT SPEC)
  18. CONTRAMAL [Concomitant]
  19. GRANOCYTE [Concomitant]
     Dosage: 1 DF= 34 (UNIT NOT SPEC)

REACTIONS (6)
  - FEBRILE BONE MARROW APLASIA [None]
  - HYPOACUSIS [None]
  - LUNG DISORDER [None]
  - MUCOSAL INFLAMMATION [None]
  - TINNITUS [None]
  - VERTIGO [None]
